FAERS Safety Report 8798183 (Version 2)
Quarter: 2015Q1

REPORT INFORMATION
  Report Type: Report from Study
  Country: US (occurrence: US)
  Receive Date: 20120920
  Receipt Date: 20150306
  Transmission Date: 20150721
  Serious: Yes (Death)
  Sender: FDA-Public Use
  Company Number: US-ROCHE-1102438

PATIENT
  Sex: Female
  Weight: 52.27 kg

DRUGS (6)
  1. AVASTIN [Suspect]
     Active Substance: BEVACIZUMAB
     Dosage: IN 250 CC NORMAL SALINE OVER 1 HOUR
     Route: 042
     Dates: start: 20080702
  2. AVASTIN [Suspect]
     Active Substance: BEVACIZUMAB
     Indication: HEPATIC CANCER
     Dosage: IN 250 CC NORMAL SALINE OVER 1 HOUR
     Route: 042
     Dates: start: 20080213
  3. AVASTIN [Suspect]
     Active Substance: BEVACIZUMAB
     Indication: HEPATOBLASTOMA
     Dosage: IN 250 CC NORMAL SALINE OVER 1 HOUR
     Route: 042
     Dates: start: 20080227
  4. AVASTIN [Suspect]
     Active Substance: BEVACIZUMAB
     Dosage: IN 250 CC NORMAL SALINE OVER 1 HOUR
     Route: 042
     Dates: start: 20080423
  5. AVASTIN [Suspect]
     Active Substance: BEVACIZUMAB
     Dosage: IN 250 CC NORMAL SALINE OVER 1 HOUR
     Route: 042
     Dates: start: 20080507
  6. AVASTIN [Suspect]
     Active Substance: BEVACIZUMAB
     Dosage: IN 250 CC NORMAL SALINE OVER 1 HOUR
     Route: 042
     Dates: start: 20080716

REACTIONS (2)
  - Off label use [Unknown]
  - Death [Fatal]
